FAERS Safety Report 7961274-3 (Version None)
Quarter: 2011Q4

REPORT INFORMATION
  Report Type: 
  Country: None (occurrence: None)
  Receive Date: 20111202
  Receipt Date: 20111129
  Transmission Date: 20120403
  Serious: Yes (Death)
  Sender: FDA-Public Use
  Company Number: 2011SA078647

PATIENT
  Age: 58 Year
  Sex: Female

DRUGS (1)
  1. PLAVIX [Suspect]
     Dates: start: 20080401

REACTIONS (1)
  - DEATH [None]
